FAERS Safety Report 8977849 (Version 1)
Quarter: 2012Q4

REPORT INFORMATION
  Report Type: 
  Country: US (occurrence: US)
  Receive Date: 20121220
  Receipt Date: 20121220
  Transmission Date: 20130627
  Serious: Yes (Hospitalization, Other)
  Sender: FDA-Public Use
  Company Number: PHEH2012US024984

PATIENT
  Age: 37 Year
  Sex: Male

DRUGS (6)
  1. GILENYA [Suspect]
     Indication: MULTIPLE SCLEROSIS
     Dosage: 0.5 mg, QD
     Route: 048
  2. VIT D [Concomitant]
     Dosage: 1 DF, QD
     Route: 048
  3. LEXAPRO [Concomitant]
     Indication: DEPRESSION
     Dosage: 10 mg, QD
     Route: 048
  4. LORTAB [Concomitant]
     Indication: PAIN
     Dosage: 500 mg, UNK
     Route: 048
  5. KEPPRA [Concomitant]
     Indication: CONVULSION
     Dosage: 500 mg, UNK
     Route: 048
  6. KEPPRA [Concomitant]
     Dosage: 500 mg, Q12H
     Route: 042

REACTIONS (2)
  - Convulsion [Recovered/Resolved]
  - Normal pressure hydrocephalus [Unknown]
